FAERS Safety Report 24715607 (Version 1)
Quarter: 2024Q4

REPORT INFORMATION
  Report Type: Report from Study
  Country: DE (occurrence: DE)
  Receive Date: 20241210
  Receipt Date: 20241210
  Transmission Date: 20250115
  Serious: Yes (Other)
  Sender: TAKEDA
  Company Number: DE-Stemline Therapeutics, Inc.-2024ST004149

PATIENT
  Age: 80 Year
  Sex: Female

DRUGS (13)
  1. BORTEZOMIB [Suspect]
     Active Substance: BORTEZOMIB
     Indication: Plasma cell myeloma
     Dosage: 1.3 MILLIGRAM/SQ. METER, 1/WEEK
     Dates: start: 20230914
  2. BORTEZOMIB [Suspect]
     Active Substance: BORTEZOMIB
     Dosage: 1.3 MILLIGRAM/SQ. METER, 1/WEEK
     Dates: start: 20240613, end: 20240725
  3. DEXAMETHASONE [Suspect]
     Active Substance: DEXAMETHASONE
     Indication: Plasma cell myeloma
     Dosage: 2 MILLIGRAM, 1/WEEK
     Dates: start: 20230914, end: 20240726
  4. SELINEXOR [Suspect]
     Active Substance: SELINEXOR
     Indication: Plasma cell myeloma
     Dosage: 20 MILLIGRAM, 1/WEEK
     Dates: start: 20230914, end: 20240725
  5. ACYCLOVIR [Concomitant]
     Active Substance: ACYCLOVIR
     Indication: Prophylaxis
     Dosage: 400 MILLIGRAM, QD
     Dates: start: 20231215
  6. CANDESARTAN [Concomitant]
     Active Substance: CANDESARTAN
     Indication: Hypertension
     Dosage: 16 MILLIGRAM, QD
  7. LEVOTHYROXINE [Concomitant]
     Active Substance: LEVOTHYROXINE
     Indication: Hypothyroidism
     Dosage: 75 MICROGRAM, QD
  8. LORAZEPAM [Concomitant]
     Active Substance: LORAZEPAM
     Indication: Panic disorder
     Dosage: 0.5 MILLIGRAM
  9. RANIBIZUMAB [Concomitant]
     Active Substance: RANIBIZUMAB
     Indication: Macular degeneration
     Dosage: UNK UNK, QD
     Route: 061
  10. RIVAROXABAN [Concomitant]
     Active Substance: RIVAROXABAN
     Indication: Prophylaxis
     Dosage: 20 MILLIGRAM, QD
  11. SERTRALINE [Concomitant]
     Active Substance: SERTRALINE HYDROCHLORIDE
     Indication: Depression
     Dosage: 50 MILLIGRAM, QD
  12. MAGNESIUM ASPARTATE\POTASSIUM ASPARTATE [Concomitant]
     Active Substance: MAGNESIUM ASPARTATE\POTASSIUM ASPARTATE
     Indication: Prophylaxis
     Dosage: UNK UNK, BID
  13. VERAPAMIL [Concomitant]
     Active Substance: VERAPAMIL HYDROCHLORIDE
     Indication: Arrhythmia
     Dosage: 80 MILLIGRAM, QD

REACTIONS (3)
  - Malignant neoplasm progression [Unknown]
  - Fatigue [Recovered/Resolved]
  - Nausea [Recovered/Resolved]

NARRATIVE: CASE EVENT DATE: 20240617
